FAERS Safety Report 9375418 (Version 1)
Quarter: 2013Q2

REPORT INFORMATION
  Report Type: Other
  Country: FR (occurrence: FR)
  Receive Date: 20130628
  Receipt Date: 20130628
  Transmission Date: 20140414
  Serious: Yes (Other)
  Sender: FDA-Public Use
  Company Number: FR-WATSON-2013-11332

PATIENT
  Sex: Male

DRUGS (1)
  1. TRELSTAR UNKNOWN STRENGTH (WATSON LABORATORIES) [Suspect]
     Indication: PROSTATE CANCER
     Route: 030

REACTIONS (3)
  - Lipomatosis [Recovering/Resolving]
  - Weight increased [Not Recovered/Not Resolved]
  - Gait disturbance [None]
